FAERS Safety Report 7110823-6 (Version None)
Quarter: 2010Q4

REPORT INFORMATION
  Report Type: 
  Country: None (occurrence: None)
  Receive Date: 20101118
  Receipt Date: 20091009
  Transmission Date: 20110411
  Serious: No
  Sender: FDA-Public Use
  Company Number: US-TEVA-210800USA

PATIENT
  Sex: Female
  Weight: 58.112 kg

DRUGS (5)
  1. ALBUTEROL SULFATE AUTOHALER [Suspect]
     Indication: ASTHMA
     Route: 055
     Dates: start: 20090901
  2. VICODIN [Concomitant]
     Indication: PAIN
  3. OMEPRAZOLE [Concomitant]
  4. FLUOXETINE [Concomitant]
  5. ALPRAZOLAM [Concomitant]

REACTIONS (1)
  - DRUG INEFFECTIVE [None]
